FAERS Safety Report 7989644-8 (Version None)
Quarter: 2011Q4

REPORT INFORMATION
  Report Type: 
  Country: None (occurrence: None)
  Receive Date: 20111219
  Receipt Date: 20111209
  Transmission Date: 20120403
  Serious: No
  Sender: FDA-Public Use
  Company Number: US-JNJFOC-20111205715

PATIENT
  Sex: Male

DRUGS (2)
  1. INVEGA [Suspect]
     Indication: SCHIZOPHRENIA
     Route: 048
     Dates: start: 20110501
  2. PROZAC [Concomitant]
     Route: 048
     Dates: start: 20110501

REACTIONS (2)
  - HEPATIC ENZYME INCREASED [None]
  - NEUTROPHIL COUNT DECREASED [None]
